FAERS Safety Report 9199552 (Version 2)
Quarter: 2013Q1

REPORT INFORMATION
  Report Type: Spontaneous
  Country: US (occurrence: None)
  Receive Date: 20130326
  Receipt Date: 20130328
  Transmission Date: 20140127
  Serious: Yes (Hospitalization)
  Sender: FDA-Public Use
  Company Number: SYM-2013-01730

PATIENT
  Age: 69 Year
  Sex: Female
  Weight: 127 kg

DRUGS (4)
  1. XENAZINE [Suspect]
     Indication: PRODUCT USED FOR UNKNOWN INDICATION
     Route: 048
  2. SYMBICORT(BUDESONIDE W/FORMOTEROL FUMARATE)(AEROSOL FOR INHALATION)(FORMOTEROL FUMARATE, BUDESONIDE) [Concomitant]
  3. PRILOSEC(OMEPRAZOLE)(CAPSULE)(OMEPRAZOLE) [Concomitant]
  4. OXYBUTYNIN(OXYBUTYNIN)(TABLETS)(OXYBUTYNIN) [Concomitant]

REACTIONS (2)
  - Chronic obstructive pulmonary disease [None]
  - Depression [None]
